FAERS Safety Report 24391273 (Version 2)
Quarter: 2025Q3

REPORT INFORMATION
  Report Type: Report from Study
  Country: US (occurrence: US)
  Receive Date: 20241003
  Receipt Date: 20250803
  Transmission Date: 20251020
  Serious: Yes (Hospitalization, Other)
  Sender: ALEXION PHARMACEUTICALS
  Company Number: US-AstraZeneca-CH-00711040A

PATIENT
  Sex: Female
  Weight: 59.874 kg

DRUGS (1)
  1. CALQUENCE [Suspect]
     Active Substance: ACALABRUTINIB
     Indication: Mantle cell lymphoma
     Dates: start: 202311

REACTIONS (3)
  - Renal impairment [Unknown]
  - Cholelithiasis [Unknown]
  - Myocardial infarction [Unknown]
